FAERS Safety Report 5842731-2 (Version None)
Quarter: 2008Q3

REPORT INFORMATION
  Report Type: 
  Country: None (occurrence: None)
  Receive Date: 20080808
  Receipt Date: 20080728
  Transmission Date: 20090109
  Serious: Yes (Other)
  Sender: FDA-Public Use
  Company Number: 2008AL008843

PATIENT
  Age: 98 Year
  Sex: Female
  Weight: 44.4525 kg

DRUGS (1)
  1. DIGOXIN [Suspect]
     Indication: CARDIAC DISORDER
     Dosage: 0.125MG, DAILY, PO SEVERAL YEARS
     Route: 048

REACTIONS (3)
  - HYPOTENSION [None]
  - NAUSEA [None]
  - WEIGHT DECREASED [None]
